FAERS Safety Report 6538423-7 (Version None)
Quarter: 2010Q1

REPORT INFORMATION
  Report Type: 
  Country: None (occurrence: None)
  Receive Date: 20100114
  Receipt Date: 20091022
  Transmission Date: 20100710
  Serious: No
  Sender: FDA-Public Use
  Company Number: US-TYCO HEALTHCARE/MALLINCKRODT-T200901931

PATIENT
  Sex: Male
  Weight: 104 kg

DRUGS (2)
  1. OXYCODONE HCL AND ACETAMINOPHEN [Suspect]
     Indication: PAIN
     Dosage: 1-2 TABS EVERY 4-6 HRS PRN, UP TO 6/DAY
     Route: 048
     Dates: start: 20080101
  2. CLONAZEPAM [Concomitant]
     Dosage: 5 MG, UNK

REACTIONS (3)
  - DRUG INEFFECTIVE [None]
  - DRY MOUTH [None]
  - NERVOUSNESS [None]
